FAERS Safety Report 7199568-4 (Version None)
Quarter: 2010Q4

REPORT INFORMATION
  Report Type: 
  Country: None (occurrence: None)
  Receive Date: 20101228
  Receipt Date: 20101217
  Transmission Date: 20110411
  Serious: Yes (Other)
  Sender: FDA-Public Use
  Company Number: US-JNJFOC-20101001572

PATIENT
  Sex: Female

DRUGS (3)
  1. LEVAQUIN [Suspect]
     Indication: EAR INFECTION
     Route: 048
  2. LEVAQUIN [Suspect]
     Route: 048
  3. PREDNISONE [Suspect]
     Indication: EAR INFECTION
     Route: 065

REACTIONS (1)
  - ROTATOR CUFF SYNDROME [None]
